FAERS Safety Report 21260610 (Version 3)
Quarter: 2022Q3

REPORT INFORMATION
  Report Type: Report from Study
  Country: TR (occurrence: TR)
  Receive Date: 20220826
  Receipt Date: 20220921
  Transmission Date: 20221026
  Serious: Yes (Death, Life-Threatening, Hospitalization, Other)
  Sender: FDA-Public Use
  Company Number: TR-BRISTOL-MYERS SQUIBB COMPANY-2022-090352

PATIENT
  Age: 34 Year
  Sex: Female
  Weight: 50 kg

DRUGS (37)
  1. PACLITAXEL [Suspect]
     Active Substance: PACLITAXEL
     Indication: Breast cancer
     Dosage: MOST RECENT DOSE ON: 25-MAY-2022
     Route: 042
     Dates: start: 20220310, end: 20220525
  2. DOXORUBICIN HYDROCHLORIDE [Suspect]
     Active Substance: DOXORUBICIN HYDROCHLORIDE
     Indication: Breast cancer
     Dosage: MOST RECENT DOSE ON: 01-JUL-2022
     Route: 042
     Dates: start: 20220531, end: 20220701
  3. CYCLOPHOSPHAMIDE [Suspect]
     Active Substance: CYCLOPHOSPHAMIDE
     Indication: Breast cancer
     Dosage: MOST RECENT DOSE ON: 01-JUL-2022
     Route: 042
     Dates: start: 20220531, end: 20220701
  4. FILGRASTIM [Concomitant]
     Active Substance: FILGRASTIM
     Indication: Septic shock
     Route: 042
     Dates: start: 20220714, end: 20220820
  5. MEROSID [Concomitant]
     Indication: Septic shock
     Route: 042
     Dates: start: 20220714, end: 20220820
  6. MEROSID [Concomitant]
     Route: 042
     Dates: start: 20220801, end: 20220801
  7. ACETYLCYSTEINE [Concomitant]
     Active Substance: ACETYLCYSTEINE
     Indication: Septic shock
     Route: 042
     Dates: start: 20220724, end: 20220729
  8. ACETYLCYSTEINE [Concomitant]
     Active Substance: ACETYLCYSTEINE
     Route: 042
     Dates: start: 20220801
  9. POTASSIUM CHLORIDE [Concomitant]
     Active Substance: POTASSIUM CHLORIDE
     Indication: Septic shock
     Dosage: 1 DF=10 UNITS NOS
     Route: 042
     Dates: start: 20220724, end: 20220729
  10. CORTAIR [Concomitant]
     Indication: Septic shock
     Route: 042
     Dates: start: 20220724, end: 20220729
  11. CORTAIR [Concomitant]
     Route: 042
     Dates: start: 20220801
  12. ALBUTEROL SULFATE\IPRATROPIUM BROMIDE [Concomitant]
     Active Substance: ALBUTEROL SULFATE\IPRATROPIUM BROMIDE
     Indication: Septic shock
     Dosage: 1 DF=2.5 UNIT UNKNOWN
     Route: 045
     Dates: start: 20220724, end: 20220820
  13. TIGECID [Concomitant]
     Indication: Septic shock
     Route: 042
     Dates: start: 20220724, end: 20220820
  14. URSODIOL [Concomitant]
     Active Substance: URSODIOL
     Indication: Upper respiratory tract infection
     Route: 048
     Dates: start: 20220724, end: 20220820
  15. CARDENOR [Concomitant]
     Indication: Septic shock
     Route: 042
     Dates: start: 20220730, end: 20220820
  16. CARDENOR [Concomitant]
     Route: 042
     Dates: start: 20220710
  17. SEDEVER [Concomitant]
     Indication: Septic shock
     Route: 042
     Dates: start: 20220731, end: 20220801
  18. FENTAVER [Concomitant]
     Indication: Septic shock
     Route: 042
     Dates: start: 20220731, end: 20220801
  19. DOPADREN [Concomitant]
     Indication: Septic shock
     Route: 042
     Dates: start: 20220731
  20. ZYGOSIS [Concomitant]
     Indication: Septic shock
     Route: 042
     Dates: start: 20220801
  21. ZYGOSIS [Concomitant]
     Route: 042
     Dates: start: 20220710, end: 20220820
  22. ETODOLAC [Concomitant]
     Active Substance: ETODOLAC
     Indication: Arthralgia
     Route: 048
     Dates: start: 20220411, end: 20220820
  23. NYSTATIN [Concomitant]
     Active Substance: NYSTATIN
     Indication: Mucosal inflammation
     Route: 048
     Dates: start: 20220608, end: 20220820
  24. SUCRALFATE [Concomitant]
     Active Substance: SUCRALFATE
     Indication: Mucosal inflammation
     Dosage: 1 DF=250 UNITS UNKNOWN
     Route: 048
     Dates: start: 20220608, end: 20220820
  25. METOCLOPRAMIDE [Concomitant]
     Active Substance: METOCLOPRAMIDE
     Indication: Nausea
     Route: 048
     Dates: start: 20220608, end: 20220820
  26. RESOURCE GLUTAMIN [Concomitant]
     Indication: Hypophagia
     Route: 048
     Dates: start: 20220616, end: 20220820
  27. RESOURCE GLUTAMIN [Concomitant]
     Indication: Mucosal inflammation
  28. KYTRIL [Concomitant]
     Active Substance: GRANISETRON HYDROCHLORIDE
     Indication: Nausea
     Route: 048
     Dates: start: 20220616, end: 20220820
  29. LEVONIDIN [Concomitant]
     Indication: Upper respiratory tract infection
     Route: 048
     Dates: start: 20220630, end: 20220820
  30. LENOGRASTIM [Concomitant]
     Active Substance: LENOGRASTIM
     Indication: Prophylaxis
     Route: 042
     Dates: start: 20220702
  31. TAZOJECT [Concomitant]
     Indication: Septic shock
     Route: 042
     Dates: start: 20220710
  32. MOLAR SODIUM BICARBONATE [Concomitant]
     Indication: Septic shock
     Dosage: 1 DF=10 UNITS UNKNOWN
     Route: 042
     Dates: start: 20220724, end: 20220729
  33. THROMBOCYTE SUSPENSION [Concomitant]
     Indication: Septic shock
     Dosage: 1 DF= 1 UNITS UNKNOWN
     Route: 042
     Dates: start: 20220801
  34. PHENIRAMINE [Concomitant]
     Active Substance: PHENIRAMINE
     Indication: Pruritus
     Route: 048
     Dates: start: 20220419, end: 20220820
  35. DELTACORTRIL [Concomitant]
     Active Substance: PREDNISOLONE
     Indication: Adrenal insufficiency
     Route: 048
     Dates: start: 20220512, end: 20220820
  36. D-COLEFOR [Concomitant]
     Indication: Prophylaxis
     Route: 048
     Dates: start: 20220512, end: 20220820
  37. DOPASEL(DOPAMINE HYDROCHLORIDE) [Concomitant]
     Indication: Septic shock
     Route: 042
     Dates: start: 20220710, end: 20220820

REACTIONS (1)
  - Hepatitis [Fatal]

NARRATIVE: CASE EVENT DATE: 20220812
